FAERS Safety Report 5031206-9 (Version None)
Quarter: 2006Q2

REPORT INFORMATION
  Report Type: 
  Country: None (occurrence: None)
  Receive Date: 20060621
  Receipt Date: 20060321
  Transmission Date: 20061013
  Serious: No
  Sender: FDA-Public Use
  Company Number: US-GLAXOSMITHKLINE-A0598395A

PATIENT
  Age: 41 Year
  Sex: Male
  Weight: 142.3 kg

DRUGS (5)
  1. AVANDARYL [Suspect]
     Route: 048
     Dates: end: 20060301
  2. AMARYL [Concomitant]
  3. VALIUM [Concomitant]
     Indication: AGITATION
  4. ULTRACET [Concomitant]
  5. TRIAMTERENE AND HYDROCHLOROTHIAZIDE [Concomitant]

REACTIONS (1)
  - AGITATION [None]
